FAERS Safety Report 15402484 (Version 1)
Quarter: 2018Q3

REPORT INFORMATION
  Report Type: Spontaneous
  Country: US (occurrence: US)
  Receive Date: 20180916
  Receipt Date: 20180916
  Transmission Date: 20181010
  Serious: No
  Sender: FDA-Public Use
  Company Number: None

PATIENT
  Age: 60 Year
  Sex: Male
  Weight: 80.55 kg

DRUGS (2)
  1. OXYCODONE/ACETAMINOPHEN 10?325 MG TB [Suspect]
     Active Substance: ACETAMINOPHEN\OXYCODONE HYDROCHLORIDE
     Indication: OSTEOARTHRITIS
     Dosage: ?          QUANTITY:1 TABLET(S);?
     Route: 048
  2. OXYCODONE/ACETAMINOPHEN 10?325 MG TB [Suspect]
     Active Substance: ACETAMINOPHEN\OXYCODONE HYDROCHLORIDE
     Indication: FIBROMYALGIA
     Dosage: ?          QUANTITY:1 TABLET(S);?
     Route: 048

REACTIONS (5)
  - Nausea [None]
  - Product substitution issue [None]
  - Drug effect decreased [None]
  - Therapy change [None]
  - Fatigue [None]

NARRATIVE: CASE EVENT DATE: 20180501
